FAERS Safety Report 21243820 (Version 1)
Quarter: 2022Q3

REPORT INFORMATION
  Report Type: Spontaneous
  Country: NL (occurrence: NL)
  Receive Date: 20220823
  Receipt Date: 20220823
  Transmission Date: 20221027
  Serious: Yes (Other)
  Sender: FDA-Public Use
  Company Number: None

PATIENT
  Age: 59 Year
  Sex: Male
  Weight: 90 kg

DRUGS (3)
  1. CLOZAPINE [Interacting]
     Active Substance: CLOZAPINE
     Indication: Product used for unknown indication
     Dosage: TABLET, 25 MG (MILLIGRAM)
     Route: 065
  2. MODERNA COVID-19 VACCINE [Interacting]
     Active Substance: ELASOMERAN
     Indication: COVID-19 immunisation
     Dosage: 1 DOSAGE FORM
     Route: 065
     Dates: start: 20220103
  3. MOCLOBEMIDE [Concomitant]
     Active Substance: MOCLOBEMIDE
     Dosage: UNK, COATED TABLET, 150 MG (MILLIGRAMS)
     Route: 065

REACTIONS (2)
  - Drug interaction [Recovering/Resolving]
  - Antipsychotic drug level decreased [Recovering/Resolving]

NARRATIVE: CASE EVENT DATE: 20220117
